FAERS Safety Report 6371604-4 (Version None)
Quarter: 2009Q3

REPORT INFORMATION
  Report Type: 
  Country: None (occurrence: None)
  Receive Date: 20090923
  Receipt Date: 20080122
  Transmission Date: 20100115
  Serious: Yes (Hospitalization, Other)
  Sender: FDA-Public Use
  Company Number: US-ASTRAZENECA-2007UW19147

PATIENT
  Age: 16282 Day
  Sex: Female
  Weight: 106.6 kg

DRUGS (15)
  1. SEROQUEL [Suspect]
     Indication: INSOMNIA
     Route: 048
     Dates: start: 20020101
  2. SEROQUEL [Suspect]
     Dosage: 40-700 MG
     Route: 048
     Dates: start: 20020131
  3. TENORMIN [Concomitant]
  4. RISPERDAL [Concomitant]
  5. PRILOSEC [Concomitant]
  6. GLYBURIDE [Concomitant]
  7. METFORMIN HCL [Concomitant]
  8. LORTAB [Concomitant]
  9. MOTRIN [Concomitant]
  10. NEURONTIN [Concomitant]
  11. AVANDIA [Concomitant]
  12. LANTUS [Concomitant]
  13. PROTONIX [Concomitant]
  14. CALCIUM CARBONATE [Concomitant]
  15. LOVASTATIN [Concomitant]

REACTIONS (2)
  - DIABETES MELLITUS [None]
  - DIABETIC KETOACIDOSIS [None]
